FAERS Safety Report 9637902 (Version 1)
Quarter: 2013Q4

REPORT INFORMATION
  Report Type: Spontaneous
  Country: FR (occurrence: FR)
  Receive Date: 20131022
  Receipt Date: 20131022
  Transmission Date: 20140711
  Serious: Yes (Hospitalization, Other)
  Sender: FDA-Public Use
  Company Number: FR-ELI_LILLY_AND_COMPANY-FR201310002799

PATIENT
  Sex: Male

DRUGS (3)
  1. ZYPADHERA [Suspect]
     Dosage: 300 MG, UNK
  2. DEPAKOTE [Concomitant]
     Dosage: 2 UNK, QD
  3. LYSANXIA [Concomitant]
     Dosage: 1 UNK, QD

REACTIONS (2)
  - Psychiatric decompensation [Unknown]
  - Diabetes mellitus [Unknown]
